FAERS Safety Report 5391486-7 (Version None)
Quarter: 2007Q3

REPORT INFORMATION
  Report Type: 
  Country: None (occurrence: None)
  Receive Date: 20070719
  Receipt Date: 20070711
  Transmission Date: 20080115
  Serious: Yes (Other)
  Sender: FDA-Public Use
  Company Number: BR-ASTRAZENECA-2007UW16465

PATIENT
  Age: 27 Year
  Sex: Female
  Weight: 62 kg

DRUGS (1)
  1. ZOLADEX [Suspect]
     Indication: ENDOMETRIOSIS
     Route: 058
     Dates: start: 20070101

REACTIONS (7)
  - ABDOMINAL DISTENSION [None]
  - APPLICATION SITE OEDEMA [None]
  - DIZZINESS [None]
  - HOT FLUSH [None]
  - MALAISE [None]
  - SENSORY DISTURBANCE [None]
  - WEIGHT INCREASED [None]
